FAERS Safety Report 20993670 (Version 1)
Quarter: 2022Q2

REPORT INFORMATION
  Report Type: Spontaneous
  Country: US (occurrence: None)
  Receive Date: 20220621
  Receipt Date: 20220621
  Transmission Date: 20220721
  Serious: No
  Sender: FDA-Public Use
  Company Number: None

PATIENT
  Age: 32 Year
  Sex: Female

DRUGS (2)
  1. PAXLOVID [Suspect]
     Active Substance: NIRMATRELVIR\RITONAVIR
  2. CORLANOR [Suspect]
     Active Substance: IVABRADINE HYDROCHLORIDE

REACTIONS (6)
  - Fatigue [None]
  - Bradycardia [None]
  - Toxicity to various agents [None]
  - Contraindicated product administered [None]
  - Contraindicated product prescribed [None]
  - Drug interaction [None]
